FAERS Safety Report 4940324-2 (Version None)
Quarter: 2006Q1

REPORT INFORMATION
  Report Type: 
  Country: None (occurrence: None)
  Receive Date: 20060310
  Receipt Date: 20050127
  Transmission Date: 20060701
  Serious: Yes (Life-Threatening, Hospitalization)
  Sender: FDA-Public Use
  Company Number: CA-MERCK-0501CAN00130

PATIENT
  Age: 64 Year
  Sex: Male
  Weight: 84 kg

DRUGS (8)
  1. SINGULAIR [Suspect]
     Indication: ASTHMA
     Route: 048
     Dates: start: 20050124, end: 20050125
  2. SULFASALAZINE [Concomitant]
     Indication: COLITIS
     Route: 065
     Dates: start: 20050119
  3. DIFLUNISAL [Concomitant]
     Indication: ARTHRITIS
     Route: 065
     Dates: start: 20041013
  4. FOSAMAX [Concomitant]
     Indication: OSTEOPOROSIS
     Route: 048
     Dates: start: 20040616
  5. NAPROXEN [Concomitant]
     Indication: ARTHRITIS
     Route: 065
     Dates: start: 20040616
  6. SILDENAFIL CITRATE [Concomitant]
     Indication: ERECTILE DYSFUNCTION
     Route: 065
     Dates: start: 20050119
  7. FLUTICASONE PROPIONATE [Concomitant]
     Route: 065
     Dates: end: 20050125
  8. ALBUTEROL [Concomitant]
     Route: 065

REACTIONS (3)
  - ACUTE MYOCARDIAL INFARCTION [None]
  - CEREBRAL ARTERY OCCLUSION [None]
  - NIGHTMARE [None]
